FAERS Safety Report 20471158 (Version 1)
Quarter: 2022Q1

REPORT INFORMATION
  Report Type: Spontaneous
  Country: IT (occurrence: IT)
  Receive Date: 20220214
  Receipt Date: 20220214
  Transmission Date: 20220423
  Serious: Yes (Hospitalization, Other)
  Sender: FDA-Public Use
  Company Number: IT-ACRAF SpA-2022-026747

PATIENT

DRUGS (5)
  1. XCOPRI [Suspect]
     Active Substance: CENOBAMATE
     Indication: Partial seizures
     Dosage: 200 MILLIGRAM
     Route: 048
     Dates: start: 20211028, end: 20220131
  2. CARBAMAZEPINE [Concomitant]
     Active Substance: CARBAMAZEPINE
     Indication: Product used for unknown indication
     Dosage: - 1000MG/DIE - 2 INTAKE PER DAY - 1ST INTAKE DATE: 2012 - LAST INTAKE DATE: 03/02/2022
     Route: 065
     Dates: start: 2012, end: 20220203
  3. VALPROIC ACID [Concomitant]
     Active Substance: VALPROIC ACID
     Dosage: 1500MG/DIE - 2 INTAKE PER DAY - 1ST INTAKE DATE: 2015 - LAST INTAKE DATE: 03/02/2022
     Route: 065
     Dates: start: 2015, end: 20220203
  4. PHENOBARBITAL [Concomitant]
     Active Substance: PHENOBARBITAL
     Indication: Product used for unknown indication
     Dosage: UNK
     Route: 065
     Dates: start: 2013, end: 20220203
  5. CLOBAZAM [Concomitant]
     Active Substance: CLOBAZAM
     Indication: Product used for unknown indication
     Dosage: 30MG/DIE - 3 INTAKE PER DAY - 1ST INTAKE DATE: 2011 - LAST INTAKE DATE: 03/02/2022
     Route: 065
     Dates: start: 2011, end: 20220203

REACTIONS (3)
  - Depressed level of consciousness [Recovered/Resolved with Sequelae]
  - Unresponsive to stimuli [Recovered/Resolved with Sequelae]
  - Blood sodium decreased [Recovering/Resolving]

NARRATIVE: CASE EVENT DATE: 20220201
